APPROVED DRUG PRODUCT: ROCURONIUM BROMIDE
Active Ingredient: ROCURONIUM BROMIDE
Strength: 50MG/5ML (10MG/ML)
Dosage Form/Route: INJECTABLE;INJECTION
Application: A205656 | Product #001 | TE Code: AP
Applicant: GLAND PHARMA LTD
Approved: Apr 4, 2018 | RLD: No | RS: Yes | Type: RX